FAERS Safety Report 4408173-1 (Version None)
Quarter: 2004Q3

REPORT INFORMATION
  Report Type: 
  Country: None (occurrence: None)
  Receive Date: 20040722
  Receipt Date: 20040706
  Transmission Date: 20050211
  Serious: Yes (Life-Threatening, Hospitalization, Disabling)
  Sender: FDA-Public Use
  Company Number: GB-JNJFOC-20040605900

PATIENT
  Age: 60 Year
  Sex: Female

DRUGS (5)
  1. REMICADE [Suspect]
     Indication: RHEUMATOID ARTHRITIS
     Dosage: 3 MG/KG, IN 8 WEEK, INTRAVENOUS
     Route: 042
     Dates: start: 20030301, end: 20040128
  2. METHOTREXATE [Concomitant]
  3. IBUROFEN (IBUPROFEN) [Concomitant]
  4. ZANTAC [Concomitant]
  5. PREDNISONE [Concomitant]

REACTIONS (4)
  - ABASIA [None]
  - CEREBROVASCULAR ACCIDENT [None]
  - CONFUSIONAL STATE [None]
  - SEPSIS [None]
